FAERS Safety Report 4388312-1 (Version None)
Quarter: 2004Q2

REPORT INFORMATION
  Report Type: 
  Country: None (occurrence: None)
  Receive Date: 20040625
  Receipt Date: 20040610
  Transmission Date: 20050107
  Serious: No
  Sender: FDA-Public Use
  Company Number: A01200402701

PATIENT
  Age: 73 Year
  Sex: Male

DRUGS (2)
  1. (ALFUZOSIN) - TABLET - UNIT DOSE : UNKNOWN [Suspect]
     Route: 048
  2. PATIENT WAS RECEIVING RADICAL RADIOTHERAPY USING 7600CGY DELIVERED IN [Concomitant]

REACTIONS (1)
  - PRIAPISM [None]
